FAERS Safety Report 14011570 (Version 1)
Quarter: 2017Q3

REPORT INFORMATION
  Report Type: Spontaneous
  Country: TH (occurrence: TH)
  Receive Date: 20170926
  Receipt Date: 20170926
  Transmission Date: 20171128
  Serious: Yes (Other)
  Sender: FDA-Public Use
  Company Number: PHHY2017TH137923

PATIENT
  Age: 76 Year
  Sex: Male

DRUGS (2)
  1. RIVASTIGMINE. [Concomitant]
     Active Substance: RIVASTIGMINE
     Indication: PRODUCT USED FOR UNKNOWN INDICATION
     Dosage: 2.5 MG, QD
     Route: 065
  2. COMTAN [Suspect]
     Active Substance: ENTACAPONE
     Indication: PARKINSON^S DISEASE
     Dosage: 1 DF, TID
     Route: 048

REACTIONS (12)
  - Lacunar infarction [Unknown]
  - Cognitive disorder [Unknown]
  - Muscle rigidity [Unknown]
  - Posterior cortical atrophy [Unknown]
  - Hyporesponsive to stimuli [Unknown]
  - Insomnia [Unknown]
  - Hallucination [Unknown]
  - Gait disturbance [Unknown]
  - Neuropsychiatric syndrome [Unknown]
  - Disorientation [Unknown]
  - Bradykinesia [Unknown]
  - Dyskinesia [Unknown]
